FAERS Safety Report 8075243-9 (Version None)
Quarter: 2012Q1

REPORT INFORMATION
  Report Type: 
  Country: None (occurrence: None)
  Receive Date: 20120127
  Receipt Date: 20111007
  Transmission Date: 20120608
  Serious: Yes (Other)
  Sender: FDA-Public Use
  Company Number: CA-JNJFOC-20120105926

PATIENT
  Sex: Female
  Weight: 60 kg

DRUGS (3)
  1. REMICADE [Suspect]
     Indication: CROHN'S DISEASE
     Route: 042
     Dates: start: 20100728
  2. CLONAZEPAM [Concomitant]
     Route: 065
  3. ESCITALOPRAM [Concomitant]
     Route: 065

REACTIONS (1)
  - SCAR EXCISION [None]
